FAERS Safety Report 9070373 (Version 1)
Quarter: 2013Q1

REPORT INFORMATION
  Report Type: Report from Study
  Country: JP (occurrence: JP)
  Receive Date: 20130215
  Receipt Date: 20130215
  Transmission Date: 20140127
  Serious: Yes (Hospitalization, Other)
  Sender: FDA-Public Use
  Company Number: JP-BAYER-2012-036124

PATIENT
  Age: 76 Year
  Sex: Female
  Weight: 47.17 kg

DRUGS (10)
  1. NEXAVAR [Suspect]
     Indication: HEPATOCELLULAR CARCINOMA
     Dosage: 200 MG DAILY
     Route: 048
     Dates: start: 20120206, end: 20120327
  2. YOKUKAN-SAN [Concomitant]
     Dosage: DAILY DOSE 5 G
     Route: 048
  3. HERBALS NOS W/VITAMINS NOS [Concomitant]
     Dosage: DAILY DOSE 4 G
     Route: 048
  4. URSO [Concomitant]
     Dosage: DAILY DOSE 300 MG
     Route: 048
  5. SHAKUYAKUKANZOUTOU [Concomitant]
     Dosage: DAILY DOSE 4 G
     Route: 048
  6. MONILAC [Concomitant]
     Dosage: 10 MG, QD
     Route: 048
  7. DIOVAN [Concomitant]
     Dosage: 40 MG, QD
     Route: 048
     Dates: start: 20050120
  8. ADALAT CR [Concomitant]
     Dosage: 20 MG, QD
     Route: 048
     Dates: start: 20050120
  9. SYOSEIRYUTO [Concomitant]
     Dosage: DAILY DOSE 6 G
     Route: 048
  10. BAKUMONDOUTO [Concomitant]
     Dosage: DAILY DOSE 6 G
     Route: 048

REACTIONS (3)
  - Oesophageal varices haemorrhage [Recovering/Resolving]
  - Haematemesis [Recovering/Resolving]
  - Ischaemic hepatitis [None]
